FAERS Safety Report 14498749 (Version 1)
Quarter: 2018Q1

REPORT INFORMATION
  Report Type: Spontaneous
  Country: NL (occurrence: NL)
  Receive Date: 20180207
  Receipt Date: 20180207
  Transmission Date: 20180509
  Serious: Yes (Life-Threatening, Hospitalization)
  Sender: FDA-Public Use
  Company Number: NL-GALDERMA-NL18001699

PATIENT
  Age: 46 Year
  Sex: Male
  Weight: 87 kg

DRUGS (3)
  1. FUROSEMIDE. [Concomitant]
     Active Substance: FUROSEMIDE
     Indication: PRODUCT USED FOR UNKNOWN INDICATION
  2. SILKIS [Suspect]
     Active Substance: CALCITRIOL
     Indication: ICHTHYOSIS
     Dosage: 1DD INSMEREN
     Dates: start: 20160414, end: 20161122
  3. LISINOPRIL. [Concomitant]
     Active Substance: LISINOPRIL
     Indication: PRODUCT USED FOR UNKNOWN INDICATION

REACTIONS (3)
  - Renal failure [Recovered/Resolved]
  - Hypercalcaemia [Recovered/Resolved]
  - Product use in unapproved indication [Recovered/Resolved]

NARRATIVE: CASE EVENT DATE: 20160503
